FAERS Safety Report 23462601 (Version 4)
Quarter: 2024Q2

REPORT INFORMATION
  Report Type: Spontaneous
  Country: DE (occurrence: DE)
  Receive Date: 20240131
  Receipt Date: 20240523
  Transmission Date: 20240716
  Serious: Yes (Disabling, Other)
  Sender: FDA-Public Use
  Company Number: None

PATIENT
  Age: 63 Year
  Sex: Female
  Weight: 61 kg

DRUGS (4)
  1. TEPMETKO [Suspect]
     Active Substance: TEPOTINIB HYDROCHLORIDE
     Indication: Lung cancer metastatic
     Route: 048
     Dates: start: 20231115
  2. TABRECTA [Suspect]
     Active Substance: CAPMATINIB
     Indication: Lung cancer metastatic
     Route: 048
     Dates: start: 20230130, end: 20231114
  3. VITAMIN D+K [Concomitant]
     Indication: Osteoporosis
     Dosage: 2000MG / 100MG
  4. LEVOTHYROXINE SODIUM [Concomitant]
     Active Substance: LEVOTHYROXINE SODIUM
     Indication: Hypothyroidism
     Dosage: L-THYROXIN 100
     Dates: start: 202201

REACTIONS (2)
  - Hypoacusis [Not Recovered/Not Resolved]
  - Impaired work ability [Not Recovered/Not Resolved]
